FAERS Safety Report 16305742 (Version 2)
Quarter: 2020Q4

REPORT INFORMATION
  Report Type: Spontaneous
  Country: US (occurrence: US)
  Receive Date: 20190513
  Receipt Date: 20201221
  Transmission Date: 20210113
  Serious: Yes (Death, Hospitalization, Other)
  Sender: FDA-Public Use
  Company Number: US-ASTRAZENECA-2019SE66845

PATIENT
  Age: 25095 Day
  Sex: Male

DRUGS (105)
  1. DOXYCYCLINE HYCLATE. [Concomitant]
     Active Substance: DOXYCYCLINE HYCLATE
  2. PRILOSEC OTC [Suspect]
     Active Substance: OMEPRAZOLE MAGNESIUM
     Indication: GASTROOESOPHAGEAL REFLUX DISEASE
     Route: 048
     Dates: start: 200102, end: 201506
  3. HYDROCODONE BITARTRATE AND ACETAMINOPHEN [Concomitant]
     Active Substance: ACETAMINOPHEN\HYDROCODONE BITARTRATE
  4. VITAMIN D3 [Concomitant]
     Active Substance: CHOLECALCIFEROL
  5. AMOX/K [Concomitant]
  6. ONGLYZA [Concomitant]
     Active Substance: SAXAGLIPTIN HYDROCHLORIDE
  7. DEXTROSE. [Concomitant]
     Active Substance: DEXTROSE
  8. ONDANSETRON [Concomitant]
     Active Substance: ONDANSETRON
  9. DOBUTAMINE [Concomitant]
     Active Substance: DOBUTAMINE HYDROCHLORIDE
  10. PROCHLORPERAZINE. [Concomitant]
     Active Substance: PROCHLORPERAZINE
  11. CEFDINIR. [Concomitant]
     Active Substance: CEFDINIR
  12. ALPHAGAN P [Concomitant]
     Active Substance: BRIMONIDINE TARTRATE
  13. METHYLPREDNISOLONE. [Concomitant]
     Active Substance: METHYLPREDNISOLONE
  14. CYMBALTA [Concomitant]
     Active Substance: DULOXETINE HYDROCHLORIDE
  15. CHERATUSSIN [Concomitant]
     Active Substance: AMMONIUM CHLORIDE\DEXTROMETHORPHAN\SODIUM CITRATE
  16. IPRATROPIUM [Concomitant]
     Active Substance: IPRATROPIUM
  17. HEPARIN [Concomitant]
     Active Substance: HEPARIN SODIUM
  18. PREVACID [Suspect]
     Active Substance: LANSOPRAZOLE
     Indication: CARDIAC OPERATION
     Route: 065
     Dates: start: 200102, end: 201506
  19. LANTUS [Concomitant]
     Active Substance: INSULIN GLARGINE
     Indication: DIABETES MELLITUS
  20. ZANTAC [Concomitant]
     Active Substance: RANITIDINE HYDROCHLORIDE
  21. MORPHINE SULPHATE [Concomitant]
     Active Substance: MORPHINE SULFATE
  22. AMLODIPINE [Concomitant]
     Active Substance: AMLODIPINE BESYLATE
  23. HYDRALAZINE [Concomitant]
     Active Substance: HYDRALAZINE HYDROCHLORIDE
  24. ADVAIR DISKUS [Concomitant]
     Active Substance: FLUTICASONE PROPIONATE\SALMETEROL XINAFOATE
  25. VYTORIN [Concomitant]
     Active Substance: EZETIMIBE\SIMVASTATIN
  26. PROPOXYPHENE. [Concomitant]
     Active Substance: PROPOXYPHENE
  27. ZOLOFT [Concomitant]
     Active Substance: SERTRALINE HYDROCHLORIDE
  28. NITROFURANTOIN. [Concomitant]
     Active Substance: NITROFURANTOIN
  29. POTASSIUM CITRATE. [Concomitant]
     Active Substance: POTASSIUM CITRATE
  30. TAMIFLU [Concomitant]
     Active Substance: OSELTAMIVIR PHOSPHATE
  31. PRILOSEC OTC [Suspect]
     Active Substance: OMEPRAZOLE MAGNESIUM
     Indication: GASTROOESOPHAGEAL REFLUX DISEASE
     Route: 048
     Dates: start: 2010
  32. SODIUM BICARBONATE. [Concomitant]
     Active Substance: SODIUM BICARBONATE
  33. CLOPIDOGREL [Concomitant]
     Active Substance: CLOPIDOGREL BISULFATE
  34. CALCIUM ACETATE. [Concomitant]
     Active Substance: CALCIUM ACETATE
  35. POLYETHYLENE GLYCOL [Concomitant]
     Active Substance: POLYETHYLENE GLYCOLS
  36. GEMFIBROZIL. [Concomitant]
     Active Substance: GEMFIBROZIL
  37. PLAVIX [Concomitant]
     Active Substance: CLOPIDOGREL BISULFATE
  38. DOCUSATE SODIUM. [Concomitant]
     Active Substance: DOCUSATE SODIUM
  39. DIPHENHYDRAMINE. [Concomitant]
     Active Substance: DIPHENHYDRAMINE
  40. MAGNESIUM HYDROXIDE. [Concomitant]
     Active Substance: MAGNESIUM HYDROXIDE
  41. PROTAMINE [Concomitant]
     Active Substance: PROTAMINE
  42. HETASTARCH. [Concomitant]
     Active Substance: HETASTARCH
  43. DARVOCET [Concomitant]
     Active Substance: ACETAMINOPHEN\PROPOXYPHENE HYDROCHLORIDE
  44. ZOSTAVAX [Concomitant]
     Active Substance: VARICELLA-ZOSTER VIRUS STRAIN OKA/MERCK LIVE ANTIGEN
  45. MONUROL [Concomitant]
     Active Substance: FOSFOMYCIN TROMETHAMINE
  46. NEXIUM [Suspect]
     Active Substance: ESOMEPRAZOLE MAGNESIUM
     Indication: GASTROOESOPHAGEAL REFLUX DISEASE
     Route: 048
     Dates: start: 2003, end: 2010
  47. FOLIC ACID. [Concomitant]
     Active Substance: FOLIC ACID
     Indication: ANAEMIA
  48. VITAMIN D [Concomitant]
     Active Substance: VITAMIN D NOS
     Indication: CALCIUM DEFICIENCY
  49. MIRTAZAPINE. [Concomitant]
     Active Substance: MIRTAZAPINE
     Indication: DEPRESSION
  50. QUETIAPINE. [Concomitant]
     Active Substance: QUETIAPINE
  51. ATROPINE SULPHATE [Concomitant]
     Active Substance: ATROPINE SULFATE
  52. DRONABINOL. [Concomitant]
     Active Substance: DRONABINOL
  53. PROAIR HFA [Concomitant]
     Active Substance: ALBUTEROL SULFATE
  54. CYCLOBENZAPRINE. [Concomitant]
     Active Substance: CYCLOBENZAPRINE
  55. CHLORHEXIDINE [Concomitant]
     Active Substance: CHLORHEXIDINE
  56. ZOVIRAX [Concomitant]
     Active Substance: ACYCLOVIR
  57. PATADAY [Concomitant]
     Active Substance: OLOPATADINE HYDROCHLORIDE
  58. CRESTOR [Concomitant]
     Active Substance: ROSUVASTATIN CALCIUM
     Indication: BLOOD CHOLESTEROL ABNORMAL
  59. DULERA [Concomitant]
     Active Substance: FORMOTEROL FUMARATE DIHYDRATE\MOMETASONE FUROATE
     Indication: ASTHMA
  60. LORAZEPAM. [Concomitant]
     Active Substance: LORAZEPAM
  61. LACTULOSE. [Concomitant]
     Active Substance: LACTULOSE
  62. ATORVASTATIN [Concomitant]
     Active Substance: ATORVASTATIN
  63. GEODON [Concomitant]
     Active Substance: ZIPRASIDONE HYDROCHLORIDE\ZIPRASIDONE MESYLATE
  64. BENICAR [Concomitant]
     Active Substance: OLMESARTAN MEDOXOMIL
  65. IODINE. [Concomitant]
     Active Substance: IODINE
  66. GLUCAGON. [Concomitant]
     Active Substance: GLUCAGON
  67. MICARDIS [Concomitant]
     Active Substance: TELMISARTAN
  68. BISOPROLOL FUMARATE. [Concomitant]
     Active Substance: BISOPROLOL FUMARATE
  69. BENZONATATE. [Concomitant]
     Active Substance: BENZONATATE
  70. PRILOSEC [Suspect]
     Active Substance: OMEPRAZOLE MAGNESIUM
     Indication: GASTROOESOPHAGEAL REFLUX DISEASE
     Dosage: GENERIC
     Route: 065
     Dates: start: 2011, end: 2014
  71. ASPIRIN. [Concomitant]
     Active Substance: ASPIRIN
     Indication: CARDIAC DISORDER
  72. RENVELA [Concomitant]
     Active Substance: SEVELAMER CARBONATE
  73. PREDNISONE. [Concomitant]
     Active Substance: PREDNISONE
  74. GLYBURIDE. [Concomitant]
     Active Substance: GLYBURIDE
  75. DIVALPROEX [Concomitant]
     Active Substance: DIVALPROEX SODIUM
  76. GLUCOVANCE [Concomitant]
     Active Substance: GLYBURIDE\METFORMIN HYDROCHLORIDE
  77. BETADINE [Concomitant]
     Active Substance: POVIDONE-IODINE
  78. ACETAMINOPHEN-CODEINE [Concomitant]
     Active Substance: ACETAMINOPHEN\CODEINE PHOSPHATE
  79. FLUOCINONIDE. [Concomitant]
     Active Substance: FLUOCINONIDE
  80. NOREPINEPHRINE. [Concomitant]
     Active Substance: NOREPINEPHRINE
  81. TRAJENTA [Concomitant]
     Active Substance: LINAGLIPTIN
  82. LINEZOLID. [Concomitant]
     Active Substance: LINEZOLID
  83. NEXIUM [Suspect]
     Active Substance: ESOMEPRAZOLE MAGNESIUM
     Indication: GASTROOESOPHAGEAL REFLUX DISEASE
     Route: 048
     Dates: start: 200102, end: 201506
  84. PREVACID [Suspect]
     Active Substance: LANSOPRAZOLE
     Indication: CARDIAC OPERATION
     Dosage: DAILY- GENERIC
     Route: 065
     Dates: start: 2010
  85. COUMADIN [Concomitant]
     Active Substance: WARFARIN SODIUM
     Indication: THROMBOSIS
  86. PEPCID [Concomitant]
     Active Substance: FAMOTIDINE
  87. WARFARIN [Concomitant]
     Active Substance: WARFARIN
  88. FLUTICASONE. [Concomitant]
     Active Substance: FLUTICASONE
  89. BYDUREON [Concomitant]
     Active Substance: EXENATIDE
  90. ACYCLOVIR. [Concomitant]
     Active Substance: ACYCLOVIR
  91. POTASSIUM CHLORIDE. [Concomitant]
     Active Substance: POTASSIUM CHLORIDE
  92. LAXATIVE [Concomitant]
     Active Substance: UNSPECIFIED INGREDIENT
  93. AMBIEN [Concomitant]
     Active Substance: ZOLPIDEM TARTRATE
  94. PHENAZOPYRIDINE. [Concomitant]
     Active Substance: PHENAZOPYRIDINE
  95. ZALEPLON. [Concomitant]
     Active Substance: ZALEPLON
  96. LYRICA [Concomitant]
     Active Substance: PREGABALIN
  97. PYRIDIUM [Concomitant]
     Active Substance: PHENAZOPYRIDINE
  98. PRILOSEC [Suspect]
     Active Substance: OMEPRAZOLE MAGNESIUM
     Indication: GASTROOESOPHAGEAL REFLUX DISEASE
     Route: 048
     Dates: start: 200102, end: 201506
  99. SPIRIVA [Concomitant]
     Active Substance: TIOTROPIUM BROMIDE MONOHYDRATE
     Indication: ASTHMA
  100. SPIRIVA [Concomitant]
     Active Substance: TIOTROPIUM BROMIDE MONOHYDRATE
     Indication: CHRONIC OBSTRUCTIVE PULMONARY DISEASE
  101. ALPRAZOLAM. [Concomitant]
     Active Substance: ALPRAZOLAM
  102. DONEPEZIL. [Concomitant]
     Active Substance: DONEPEZIL
  103. AMIODARONE [Concomitant]
     Active Substance: AMIODARONE
  104. BACITRACIN/NEOMYCIN/POLY [Concomitant]
  105. SODIUM CHLORIDE. [Concomitant]
     Active Substance: SODIUM CHLORIDE

REACTIONS (7)
  - Renal failure [Unknown]
  - Acute kidney injury [Unknown]
  - End stage renal disease [Fatal]
  - Multiple organ dysfunction syndrome [Fatal]
  - Chronic kidney disease [Unknown]
  - Nephrogenic anaemia [Unknown]
  - Hyperparathyroidism secondary [Unknown]

NARRATIVE: CASE EVENT DATE: 20101018
